FAERS Safety Report 4805074-1 (Version None)
Quarter: 2005Q4

REPORT INFORMATION
  Report Type: 
  Country: None (occurrence: None)
  Receive Date: 20051017
  Receipt Date: 20050930
  Transmission Date: 20060501
  Serious: Yes (Death, Other)
  Sender: FDA-Public Use
  Company Number: 12583

PATIENT
  Age: 83 Year

DRUGS (3)
  1. DILTIAZEM [Suspect]
  2. ASPIRIN [Suspect]
  3. ACETAMINOPHEN [Suspect]

REACTIONS (4)
  - COMPLETED SUICIDE [None]
  - INTENTIONAL DRUG MISUSE [None]
  - MULTIPLE DRUG OVERDOSE [None]
  - POISONING [None]
